FAERS Safety Report 9417020 (Version 3)
Quarter: 2013Q4

REPORT INFORMATION
  Report Type: Spontaneous
  Country: US (occurrence: US)
  Receive Date: 20130724
  Receipt Date: 20131119
  Transmission Date: 20140711
  Serious: Yes (Hospitalization)
  Sender: FDA-Public Use
  Company Number: US-009507513-1307USA012417

PATIENT
  Age: 84 Year
  Sex: Male

DRUGS (13)
  1. JANUVIA [Suspect]
     Indication: DIABETES MELLITUS
     Dosage: 100 MG, QD
     Route: 048
     Dates: start: 201302, end: 201306
  2. AMLODIPINE [Concomitant]
  3. ATORVASTATIN [Concomitant]
     Dosage: 20 MG, QD
  4. AVODART [Concomitant]
     Dosage: 5 MG, QPM
  5. CYANOCOBALAMIN [Concomitant]
     Dosage: B 12 500 MCG DAILY
  6. METOLAZONE [Concomitant]
     Dosage: 2.5 MG, QOD
  7. WARFARIN [Concomitant]
     Dosage: 5 MG, MONDAYS, WEDNESDAYS AND FRIDAYS
  8. WARFARIN [Concomitant]
     Dosage: 2.5 MG, TUESDAYS, SATURDAYS AND SUNDAYS
  9. DOXAZOSIN MESYLATE [Concomitant]
     Dosage: 8 MG, QPM
  10. FOLIC ACID [Concomitant]
     Dosage: 400 MICROGRAM, BID
  11. FUROSEMIDE [Concomitant]
     Dosage: 20 MG, TID
  12. ISOSORBIDE MONONITRATE [Concomitant]
     Dosage: 30 MG, IN THE MORNING AND EVENING
  13. ZETIA [Concomitant]
     Dosage: 10 MG, QPM

REACTIONS (8)
  - Transient ischaemic attack [Recovering/Resolving]
  - Renal disorder [Recovering/Resolving]
  - Bladder disorder [Unknown]
  - Prostatic disorder [Unknown]
  - Bladder catheterisation [Unknown]
  - Gastrointestinal polyp haemorrhage [Unknown]
  - Diverticulitis intestinal haemorrhagic [Unknown]
  - Haematochezia [Unknown]
